FAERS Safety Report 4675284-5 (Version None)
Quarter: 2005Q2

REPORT INFORMATION
  Report Type: 
  Country: None (occurrence: None)
  Receive Date: 20050527
  Receipt Date: 20050428
  Transmission Date: 20051028
  Serious: Yes (Other)
  Sender: FDA-Public Use
  Company Number: JP-JNJFOC-20031205171

PATIENT
  Age: 79 Year
  Sex: Male

DRUGS (13)
  1. REMICADE [Suspect]
     Route: 042
  2. REMICADE [Suspect]
     Route: 042
  3. REMICADE [Suspect]
     Route: 042
  4. REMICADE [Suspect]
     Route: 042
  5. REMICADE [Suspect]
     Route: 042
  6. REMICADE [Suspect]
     Indication: RHEUMATOID ARTHRITIS
     Route: 042
  7. METHOTREXATE [Concomitant]
     Route: 065
  8. ISONIAZID [Concomitant]
     Route: 065
  9. FOLIC ACID [Concomitant]
  10. LOXOPROFEN SODIUM [Concomitant]
  11. PREDNISOLONE [Concomitant]
  12. RIMACTANE [Concomitant]
  13. SULFASALAZINE [Concomitant]

REACTIONS (3)
  - ATYPICAL MYCOBACTERIAL INFECTION [None]
  - EXANTHEM [None]
  - STOMATITIS [None]
